FAERS Safety Report 6936964-1 (Version None)
Quarter: 2010Q3

REPORT INFORMATION
  Report Type: 
  Country: None (occurrence: None)
  Receive Date: 20100817
  Receipt Date: 20100803
  Transmission Date: 20110219
  Serious: Yes (Hospitalization)
  Sender: FDA-Public Use
  Company Number: CTI_01212_2010

PATIENT
  Sex: Female

DRUGS (2)
  1. MEIACT (MEIACT MS (CEFDITOREN PIVOXIL)) (NOT SPECIFIED) [Suspect]
     Indication: CELLULITIS
     Dosage: (DF ORAL)
     Route: 048
     Dates: start: 20100706, end: 20100708
  2. FLOMOX (FFFLOMOX (CEFCAPENE PIVOXIL HYDROCHLORIDE HYDRATE)) (NOT SPECI [Suspect]
     Indication: CELLULITIS
     Dosage: (300 MG ORAL)
     Route: 048
     Dates: start: 20100501, end: 20100705

REACTIONS (5)
  - DRUG ERUPTION [None]
  - GENERALISED ERYTHEMA [None]
  - LYMPHOCYTE STIMULATION TEST POSITIVE [None]
  - STASIS DERMATITIS [None]
  - THROMBOPHLEBITIS [None]
